FAERS Safety Report 7204399-2 (Version None)
Quarter: 2010Q4

REPORT INFORMATION
  Report Type: 
  Country: None (occurrence: None)
  Receive Date: 20101230
  Receipt Date: 20101220
  Transmission Date: 20110411
  Serious: Yes (Hospitalization, Other)
  Sender: FDA-Public Use
  Company Number: JP-ROCHE-666966

PATIENT
  Age: 18 Year
  Sex: Male
  Weight: 23 kg

DRUGS (5)
  1. CELLCEPT [Suspect]
     Route: 048
     Dates: start: 20060101
  2. TACROLIMUS [Concomitant]
     Route: 048
     Dates: start: 20060101
  3. MEDROL [Concomitant]
     Route: 048
     Dates: start: 20060101
  4. MEDROL [Concomitant]
     Route: 048
  5. CYCLOSPORINE [Concomitant]
     Dosage: DOSE FORM: ORAL FORMULATION (NOT OTHERWISE SPECIFIED)
     Route: 048

REACTIONS (7)
  - CARDIOMEGALY [None]
  - DIABETES MELLITUS [None]
  - DISSEMINATED INTRAVASCULAR COAGULATION [None]
  - PULMONARY OEDEMA [None]
  - PYELONEPHRITIS ACUTE [None]
  - SEPTIC SHOCK [None]
  - URINARY TRACT INFECTION [None]
